FAERS Safety Report 5584008-9 (Version None)
Quarter: 2008Q1

REPORT INFORMATION
  Report Type: 
  Country: None (occurrence: None)
  Receive Date: 20080108
  Receipt Date: 20080104
  Transmission Date: 20080703
  Serious: Yes (Hospitalization, Other)
  Sender: FDA-Public Use
  Company Number: GB-JNJFOC-20071204293

PATIENT
  Sex: Female
  Weight: 110 kg

DRUGS (14)
  1. REMICADE [Suspect]
     Indication: RHEUMATOID ARTHRITIS
     Route: 042
  2. PREDNISOLONE [Concomitant]
  3. ACYCLOVIR [Concomitant]
  4. AMITRIPTLINE [Concomitant]
  5. CALCICHEW [Concomitant]
  6. CO-CODAMOL [Concomitant]
  7. COTRIMAZOLE [Concomitant]
  8. FLUOXETINE HCL [Concomitant]
  9. LOPERAMIDE HCL [Concomitant]
  10. OMEPRAZOLE [Concomitant]
  11. PARACETAMOL [Concomitant]
  12. TRAMADOL HCL [Concomitant]
  13. ZOLPIDEM [Concomitant]
  14. MYCOPHENYLATE [Concomitant]

REACTIONS (3)
  - CEREBROVASCULAR ACCIDENT [None]
  - HYPOTHYROIDISM [None]
  - INFECTION [None]
